FAERS Safety Report 5991015-0 (Version None)
Quarter: 2008Q4

REPORT INFORMATION
  Report Type: 
  Country: None (occurrence: None)
  Receive Date: 20081211
  Receipt Date: 20081201
  Transmission Date: 20090506
  Serious: Yes (Other)
  Sender: FDA-Public Use
  Company Number: US-MERCK-0711USA04228

PATIENT
  Age: 40 Year
  Sex: Male
  Weight: 94 kg

DRUGS (6)
  1. PROPECIA [Suspect]
     Indication: ALOPECIA
     Route: 048
     Dates: start: 20050101, end: 20070501
  2. PROPECIA [Suspect]
     Indication: ANDROGENETIC ALOPECIA
     Route: 048
     Dates: start: 20050101, end: 20070501
  3. ACYCLOVIR [Concomitant]
     Route: 065
  4. PROSCAR [Suspect]
     Route: 048
     Dates: start: 20050101
  5. FINASTERIDE [Suspect]
     Route: 048
     Dates: start: 20070101, end: 20070101
  6. VITAMINS (UNSPECIFIED) [Concomitant]
     Route: 065

REACTIONS (16)
  - ANXIETY [None]
  - BLOOD TESTOSTERONE DECREASED [None]
  - CHEST PAIN [None]
  - DEPRESSION [None]
  - DIZZINESS [None]
  - DRUG INTOLERANCE [None]
  - ERECTILE DYSFUNCTION [None]
  - FATIGUE [None]
  - HYPERHIDROSIS [None]
  - INSOMNIA [None]
  - LIBIDO DECREASED [None]
  - PALPITATIONS [None]
  - PARANOIA [None]
  - SEMEN ANALYSIS ABNORMAL [None]
  - SUICIDAL IDEATION [None]
  - WRONG TECHNIQUE IN DRUG USAGE PROCESS [None]
